FAERS Safety Report 21427440 (Version 4)
Quarter: 2023Q4

REPORT INFORMATION
  Report Type: Report from Study
  Country: DE (occurrence: DE)
  Receive Date: 20221008
  Receipt Date: 20231030
  Transmission Date: 20240110
  Serious: Yes (Other)
  Sender: FDA-Public Use
  Company Number: DE-NOVARTISPH-NVSC2022DE085142

PATIENT
  Sex: Female
  Weight: 75 kg

DRUGS (4)
  1. MAYZENT [Suspect]
     Active Substance: SIPONIMOD
     Indication: Secondary progressive multiple sclerosis
     Dosage: 2 MG, QD
     Route: 048
     Dates: start: 20220324, end: 20220428
  2. MAYZENT [Suspect]
     Active Substance: SIPONIMOD
     Dosage: 2 MG, EVERY 2 DAYS
     Route: 048
     Dates: start: 20220429, end: 20221005
  3. MAYZENT [Suspect]
     Active Substance: SIPONIMOD
     Dosage: 2 MG, EVERY SECOND DAY
     Route: 048
     Dates: start: 20221206, end: 20221210
  4. MAYZENT [Suspect]
     Active Substance: SIPONIMOD
     Dosage: 2 MG, EVERY SECOND DAY
     Route: 048
     Dates: start: 20221211, end: 20221223

REACTIONS (3)
  - Leukopenia [Not Recovered/Not Resolved]
  - Bradycardia [Recovered/Resolved]
  - Lymphopenia [Not Recovered/Not Resolved]

NARRATIVE: CASE EVENT DATE: 20220324
